FAERS Safety Report 9524716 (Version 2)
Quarter: 2013Q4

REPORT INFORMATION
  Report Type: Report from Study
  Country: BR (occurrence: BR)
  Receive Date: 20130916
  Receipt Date: 20131031
  Transmission Date: 20140711
  Serious: Yes (Death, Other)
  Sender: FDA-Public Use
  Company Number: PHHY2013BR101880

PATIENT
  Age: 81 Year
  Sex: Female

DRUGS (5)
  1. ACLASTA [Suspect]
     Indication: OSTEOPOROSIS
     Dosage: 5 MG, UNK
     Route: 042
     Dates: start: 2012
  2. RENITEC                                 /NET/ [Concomitant]
     Dosage: UNK UKN, UNK
  3. LANTUS [Concomitant]
     Dosage: UNK UKN, UNK
     Dates: start: 2010
  4. BUSCOPAN [Concomitant]
     Dosage: UNK UKN, UNK
     Dates: start: 201305
  5. SERETIDE [Concomitant]
     Dosage: UNK UKN, UNK
     Dates: start: 2008

REACTIONS (3)
  - Death [Fatal]
  - Ischaemia [Not Recovered/Not Resolved]
  - Hypokinesia [Not Recovered/Not Resolved]
